FAERS Safety Report 4754582-0 (Version None)
Quarter: 2005Q3

REPORT INFORMATION
  Report Type: 
  Country: None (occurrence: None)
  Receive Date: 20050825
  Receipt Date: 20050811
  Transmission Date: 20060218
  Serious: Yes (Death)
  Sender: FDA-Public Use
  Company Number: 2005115465

PATIENT
  Age: 27 Year
  Sex: Male

DRUGS (4)
  1. ZYVOX [Suspect]
     Indication: ILL-DEFINED DISORDER
     Dosage: INTRAVENOUS
     Route: 042
  2. CIPROFLOXACIN HCL [Suspect]
     Indication: ILL-DEFINED DISORDER
     Dosage: ORAL
     Route: 048
  3. BACTRIM [Suspect]
     Indication: ILL-DEFINED DISORDER
     Dosage: ORAL
     Route: 048
  4. CELLCEPT [Suspect]
     Indication: ILL-DEFINED DISORDER
     Dosage: 2 GRAM (2 IN 1 D), ORAL
     Route: 048
     Dates: start: 20020807

REACTIONS (5)
  - ACUTE RESPIRATORY DISTRESS SYNDROME [None]
  - COMA [None]
  - IATROGENIC INJURY [None]
  - INFECTION IN AN IMMUNOCOMPROMISED HOST [None]
  - RESPIRATORY SYNCYTIAL VIRUS INFECTION [None]
